FAERS Safety Report 4742963-0 (Version None)
Quarter: 2005Q3

REPORT INFORMATION
  Report Type: 
  Country: None (occurrence: None)
  Receive Date: 20050810
  Receipt Date: 20050810
  Transmission Date: 20060218
  Serious: Yes (Hospitalization, Other)
  Sender: FDA-Public Use
  Company Number: None

PATIENT
  Sex: Male
  Weight: 82 kg

DRUGS (4)
  1. DOXORUBICIN HCL [Suspect]
     Indication: HODGKIN'S DISEASE
     Dosage: SEE IMAGE
     Route: 042
     Dates: start: 20050629, end: 20050722
  2. BLEOMYCIN [Suspect]
     Dosage: SEE IMAGE
     Route: 042
     Dates: start: 20050629, end: 20050722
  3. VINBLASTINE [Suspect]
     Dosage: SEE IMAGE
     Route: 042
     Dates: start: 20050629, end: 20050722
  4. DACARBAZINE [Concomitant]
     Dosage: SEE IMAGE
     Route: 042
     Dates: start: 20050629, end: 20050722

REACTIONS (4)
  - FURUNCLE [None]
  - HIDRADENITIS [None]
  - HORDEOLUM [None]
  - PULMONARY EMBOLISM [None]
